FAERS Safety Report 24432872 (Version 2)
Quarter: 2024Q4

REPORT INFORMATION
  Report Type: Spontaneous
  Country: JP (occurrence: JP)
  Receive Date: 20241014
  Receipt Date: 20241119
  Transmission Date: 20250114
  Serious: Yes (Other)
  Sender: MERCK
  Company Number: JP-MSD-2407JPN005233J

PATIENT
  Age: 45 Year
  Sex: Male

DRUGS (4)
  1. ZERBAXA [Suspect]
     Active Substance: CEFTOLOZANE SULFATE\TAZOBACTAM SODIUM
     Indication: Sepsis
     Dosage: 3 GRAM, QD
     Route: 041
     Dates: start: 20240401, end: 20240401
  2. ZERBAXA [Suspect]
     Active Substance: CEFTOLOZANE SULFATE\TAZOBACTAM SODIUM
     Dosage: 2.25 GRAM, TID
     Route: 041
     Dates: start: 20240402, end: 20240407
  3. ZERBAXA [Suspect]
     Active Substance: CEFTOLOZANE SULFATE\TAZOBACTAM SODIUM
     Dosage: 1.35 GRAM, TID
     Route: 041
     Dates: start: 20240408, end: 20240524
  4. ZERBAXA [Suspect]
     Active Substance: CEFTOLOZANE SULFATE\TAZOBACTAM SODIUM
     Dosage: UNK
     Route: 041
     Dates: start: 20240621, end: 20240704

REACTIONS (5)
  - Cytomegalovirus enterocolitis [Unknown]
  - Bacteraemia [Unknown]
  - Fungal infection [Unknown]
  - Drug resistance [Unknown]
  - Urinary tract infection bacterial [Recovering/Resolving]

NARRATIVE: CASE EVENT DATE: 20240412
